FAERS Safety Report 11345529 (Version 2)
Quarter: 2015Q3

REPORT INFORMATION
  Report Type: Spontaneous
  Country: US (occurrence: US)
  Receive Date: 20150806
  Receipt Date: 20150924
  Transmission Date: 20151125
  Serious: No
  Sender: FDA-Public Use
  Company Number: US-PFIZER INC-2015249982

PATIENT
  Age: 47 Year
  Sex: Male
  Weight: 120 kg

DRUGS (1)
  1. EMBEDA [Suspect]
     Active Substance: MORPHINE SULFATE\NALTREXONE HYDROCHLORIDE
     Indication: PAIN
     Dosage: UNK, 1X/DAY (30/1.2 MG)
     Dates: start: 20150707, end: 20150725

REACTIONS (5)
  - Headache [Unknown]
  - Cold sweat [Unknown]
  - Feeling abnormal [Unknown]
  - Product physical issue [Unknown]
  - Withdrawal syndrome [Unknown]
